FAERS Safety Report 24960973 (Version 3)
Quarter: 2025Q1

REPORT INFORMATION
  Report Type: Spontaneous
  Country: DK (occurrence: DK)
  Receive Date: 20250212
  Receipt Date: 20250220
  Transmission Date: 20250408
  Serious: Yes (Hospitalization)
  Sender: PFIZER
  Company Number: DK-PFIZER INC-PV202500014729

PATIENT
  Age: 8 Year
  Sex: Male
  Weight: 21 kg

DRUGS (46)
  1. FOSPHENYTOIN SODIUM [Interacting]
     Active Substance: FOSPHENYTOIN SODIUM
     Indication: Epilepsy
     Route: 042
  2. MEROPENEM [Interacting]
     Active Substance: MEROPENEM
     Indication: Abdominal infection
     Dosage: 20 MG/KG (1200 MG), 3X/DAY (DAY 13-23)
     Route: 042
  3. LAMOTRIGINE [Interacting]
     Active Substance: LAMOTRIGINE
     Indication: Epilepsy
     Route: 048
  4. LAMOTRIGINE [Interacting]
     Active Substance: LAMOTRIGINE
     Route: 048
  5. PHENOBARBITAL [Interacting]
     Active Substance: PHENOBARBITAL
     Indication: Epilepsy
     Route: 048
  6. PHENOBARBITAL [Interacting]
     Active Substance: PHENOBARBITAL
     Route: 042
  7. TOPIRAMATE [Interacting]
     Active Substance: TOPIRAMATE
     Indication: Epilepsy
     Route: 048
  8. VALPROIC ACID [Interacting]
     Active Substance: VALPROIC ACID
     Indication: Epilepsy
     Route: 048
  9. VALPROIC ACID [Interacting]
     Active Substance: VALPROIC ACID
     Route: 048
  10. VALPROIC ACID [Interacting]
     Active Substance: VALPROIC ACID
     Route: 042
  11. VALPROIC ACID [Interacting]
     Active Substance: VALPROIC ACID
  12. ANIDULAFUNGIN [Concomitant]
     Active Substance: ANIDULAFUNGIN
     Indication: Abdominal infection
     Dosage: 1.5 MG/KG (32 MG), 1X/DAY (DAY 11-35)
     Route: 042
  13. CLOBAZAM [Concomitant]
     Active Substance: CLOBAZAM
     Indication: Epilepsy
     Route: 048
  14. LEVETIRACETAM [Concomitant]
     Active Substance: LEVETIRACETAM
     Indication: Epilepsy
     Route: 042
  15. LEVETIRACETAM [Concomitant]
     Active Substance: LEVETIRACETAM
     Route: 048
  16. MIDAZOLAM [Concomitant]
     Active Substance: MIDAZOLAM
     Indication: Epilepsy
     Route: 002
  17. MIDAZOLAM [Concomitant]
     Active Substance: MIDAZOLAM
     Route: 048
  18. MIDAZOLAM [Concomitant]
     Active Substance: MIDAZOLAM
     Route: 042
  19. ESOMEPRAZOLE [Concomitant]
     Active Substance: ESOMEPRAZOLE
     Route: 048
  20. ONDANSETRON [Concomitant]
     Active Substance: ONDANSETRON
     Route: 048
  21. ONDANSETRON [Concomitant]
     Active Substance: ONDANSETRON
     Route: 042
  22. CLONIDINE [Concomitant]
     Active Substance: CLONIDINE
     Indication: Sedative therapy
     Route: 042
  23. DEXAMETHASONE [Concomitant]
     Active Substance: DEXAMETHASONE
     Route: 042
  24. AMPICILLIN [Concomitant]
     Active Substance: AMPICILLIN
     Route: 042
  25. PENICILLIN G [Concomitant]
     Active Substance: PENICILLIN G
     Route: 042
  26. PIPERACILLIN SODIUM\TAZOBACTAM SODIUM [Concomitant]
     Active Substance: PIPERACILLIN SODIUM\TAZOBACTAM SODIUM
     Route: 042
  27. GENTAMICIN [Concomitant]
     Active Substance: GENTAMICIN
     Route: 042
  28. METRONIDAZOLE [Concomitant]
     Active Substance: METRONIDAZOLE
     Route: 042
  29. FLUCONAZOLE [Concomitant]
     Active Substance: FLUCONAZOLE
     Route: 042
  30. KETOROLAC [Concomitant]
     Active Substance: KETOROLAC TROMETHAMINE
     Route: 042
  31. NAPROXEN [Concomitant]
     Active Substance: NAPROXEN
     Route: 048
  32. BACLOFEN [Concomitant]
     Active Substance: BACLOFEN
     Route: 048
  33. FENTANYL [Concomitant]
     Active Substance: FENTANYL
     Indication: Sedation
     Route: 042
  34. PROPOFOL [Concomitant]
     Active Substance: PROPOFOL
     Indication: Sedation
     Route: 042
  35. ACETAMINOPHEN [Concomitant]
     Active Substance: ACETAMINOPHEN
     Route: 048
  36. ACETAMINOPHEN [Concomitant]
     Active Substance: ACETAMINOPHEN
     Route: 042
  37. GABAPENTIN [Concomitant]
     Active Substance: GABAPENTIN
     Route: 048
  38. MORPHINE [Concomitant]
     Active Substance: MORPHINE
     Route: 048
  39. MORPHINE [Concomitant]
     Active Substance: MORPHINE
     Route: 042
  40. CLONAZEPAM [Concomitant]
     Active Substance: CLONAZEPAM
     Route: 048
  41. HALOPERIDOL [Concomitant]
     Active Substance: HALOPERIDOL
     Indication: Delirium
     Route: 042
  42. HALOPERIDOL [Concomitant]
     Active Substance: HALOPERIDOL
     Route: 048
  43. DIAZEPAM [Concomitant]
     Active Substance: DIAZEPAM
     Route: 054
  44. LORAZEPAM [Concomitant]
     Active Substance: LORAZEPAM
     Route: 048
  45. MELATONIN [Concomitant]
     Active Substance: MELATONIN
     Route: 048
  46. LEVOMEPROMAZINE [Concomitant]
     Active Substance: LEVOMEPROMAZINE
     Indication: Sedative therapy
     Route: 048

REACTIONS (3)
  - Drug interaction [Recovering/Resolving]
  - Drug level decreased [Recovering/Resolving]
  - Drug level below therapeutic [Recovering/Resolving]
